FAERS Safety Report 21486372 (Version 2)
Quarter: 2022Q4

REPORT INFORMATION
  Report Type: Spontaneous
  Country: US (occurrence: US)
  Receive Date: 20221020
  Receipt Date: 20221123
  Transmission Date: 20230112
  Serious: Yes (Disabling)
  Sender: FDA-Public Use
  Company Number: US-PFIZER INC-202201239662

PATIENT
  Age: 77 Year
  Sex: Female
  Weight: 99.79 kg

DRUGS (1)
  1. DEPO-ESTRADIOL [Suspect]
     Active Substance: ESTRADIOL CYPIONATE
     Dosage: UNK

REACTIONS (5)
  - Disability [Unknown]
  - Thinking abnormal [Unknown]
  - Hot flush [Unknown]
  - Gait disturbance [Unknown]
  - Anger [Unknown]

NARRATIVE: CASE EVENT DATE: 20220101
